FAERS Safety Report 11939055 (Version 1)
Quarter: 2016Q1

REPORT INFORMATION
  Report Type: Spontaneous
  Country: CN (occurrence: CN)
  Receive Date: 20160122
  Receipt Date: 20160122
  Transmission Date: 20160526
  Serious: Yes (Other)
  Sender: FDA-Public Use
  Company Number: CN-SA-2016SA010192

PATIENT
  Age: 74 Year
  Sex: Male

DRUGS (7)
  1. PLAVIX [Suspect]
     Active Substance: CLOPIDOGREL BISULFATE
     Indication: CEREBRAL INFARCTION
     Route: 048
     Dates: start: 20150804, end: 20150810
  2. LIPITOR [Concomitant]
     Active Substance: ATORVASTATIN CALCIUM
     Indication: LIPIDS ABNORMAL
     Dosage: FREQUENCY: IN EVENING
     Route: 048
     Dates: start: 20150802
  3. CEFTRIAXONE SODIUM. [Concomitant]
     Active Substance: CEFTRIAXONE SODIUM
     Indication: ANTI-INFECTIVE THERAPY
     Route: 041
     Dates: start: 20150802
  4. LIPITOR [Concomitant]
     Active Substance: ATORVASTATIN CALCIUM
     Indication: ARTERIOSCLEROSIS CORONARY ARTERY
     Dosage: FREQUENCY: IN EVENING
     Route: 048
     Dates: start: 20150802
  5. PIRACETAM [Concomitant]
     Active Substance: PIRACETAM
     Indication: ORGAN PRESERVATION
     Route: 041
     Dates: start: 20150802
  6. ASPIRIN. [Concomitant]
     Active Substance: ASPIRIN
     Dosage: FORM:ENTERIC COATED TABLETS
     Route: 048
     Dates: start: 20150804, end: 20150810
  7. CEFTRIAXONE SODIUM. [Concomitant]
     Active Substance: CEFTRIAXONE SODIUM
     Indication: LUNG INFECTION
     Route: 041
     Dates: start: 20150802

REACTIONS (1)
  - Occult blood positive [Not Recovered/Not Resolved]

NARRATIVE: CASE EVENT DATE: 20150810
